FAERS Safety Report 18352860 (Version 1)
Quarter: 2020Q4

REPORT INFORMATION
  Report Type: Spontaneous
  Country: US (occurrence: US)
  Receive Date: 20201006
  Receipt Date: 20201006
  Transmission Date: 20210114
  Serious: No
  Sender: FDA-Public Use
  Company Number: US-ALLERGAN-1953636US

PATIENT
  Sex: Female
  Weight: 85.73 kg

DRUGS (1)
  1. LINZESS [Suspect]
     Active Substance: LINACLOTIDE
     Indication: MITOCHONDRIAL MYOPATHY
     Dosage: 72MG,THREE CAPSULES BY MOUTH
     Route: 048

REACTIONS (5)
  - Gastrointestinal pain [Unknown]
  - Constipation [Unknown]
  - Off label use [Unknown]
  - Drug ineffective [Unknown]
  - Electrolyte depletion [Unknown]
